FAERS Safety Report 18487284 (Version 1)
Quarter: 2020Q4

REPORT INFORMATION
  Report Type: Spontaneous
  Country: NL (occurrence: NL)
  Receive Date: 20201110
  Receipt Date: 20201110
  Transmission Date: 20210114
  Serious: Yes (Hospitalization, Other)
  Sender: FDA-Public Use
  Company Number: NL-MYLANLABS-2020M1092970

PATIENT
  Sex: Female

DRUGS (3)
  1. VALSARTAN. [Suspect]
     Active Substance: VALSARTAN
     Indication: PRODUCT USED FOR UNKNOWN INDICATION
     Dosage: 160 MILLIGRAM, QD (IN THE MORNING AND EVENING FOR SEVEN DAYS, REPORTED AS VALSARTAN KRKA 80MG)
  2. RENITEC                            /00574902/ [Suspect]
     Active Substance: ENALAPRIL MALEATE
     Indication: PRODUCT USED FOR UNKNOWN INDICATION
     Dosage: 20 MILLIGRAM
     Route: 048
  3. RENITEC                            /00574902/ [Suspect]
     Active Substance: ENALAPRIL MALEATE
     Dosage: 10 MILLIGRAM
     Route: 048

REACTIONS (9)
  - Adverse event [Unknown]
  - Product availability issue [Unknown]
  - Feeling drunk [Not Recovered/Not Resolved]
  - Blood pressure increased [Unknown]
  - Conversion disorder [Unknown]
  - Suicidal ideation [Unknown]
  - Hyperventilation [Unknown]
  - Crying [Unknown]
  - Rash [Unknown]

NARRATIVE: CASE EVENT DATE: 2020
